FAERS Safety Report 17245705 (Version 1)
Quarter: 2020Q1

REPORT INFORMATION
  Report Type: Spontaneous
  Country: NL (occurrence: NL)
  Receive Date: 20200108
  Receipt Date: 20200108
  Transmission Date: 20200409
  Serious: Yes (Hospitalization)
  Sender: FDA-Public Use
  Company Number: NL-TEVA-2020-NL-1163560

PATIENT
  Age: 5 Year
  Sex: Male
  Weight: 87 kg

DRUGS (1)
  1. LAMIVUDINE/ZIDOVUDINE [Suspect]
     Active Substance: LAMIVUDINE\ZIDOVUDINE
     Indication: HIV INFECTION
     Dosage: COATED TABLET, 150/300 MG (MILLIGRAMS), TWICE A DAY, 1
     Route: 065
     Dates: start: 20160801

REACTIONS (4)
  - Blood glucose increased [Not Recovered/Not Resolved]
  - Obesity [Not Recovered/Not Resolved]
  - Lipids increased [Not Recovered/Not Resolved]
  - Lipodystrophy acquired [Not Recovered/Not Resolved]

NARRATIVE: CASE EVENT DATE: 20160801
